FAERS Safety Report 6544606-2 (Version None)
Quarter: 2010Q1

REPORT INFORMATION
  Report Type: 
  Country: None (occurrence: None)
  Receive Date: 20100121
  Receipt Date: 20100109
  Transmission Date: 20100710
  Serious: Yes (Other)
  Sender: FDA-Public Use
  Company Number: PHHY2010FR01060

PATIENT
  Age: 34 Year
  Sex: Male

DRUGS (9)
  1. CYCLOSPORINE [Suspect]
     Indication: ANTISYNTHETASE SYNDROME
  2. MYCOPHENOLATE MOFETIL [Concomitant]
     Indication: ANTISYNTHETASE SYNDROME
     Dosage: 2 G/DAY
  3. MYCOPHENOLATE MOFETIL [Concomitant]
     Dosage: 500 MG/DAY
  4. CYCLOPHOSPHAMIDE [Concomitant]
     Indication: ANTISYNTHETASE SYNDROME
     Dosage: 6 PULSES
  5. PREDNISONE [Concomitant]
     Indication: ANTISYNTHETASE SYNDROME
  6. IMMUNOGLOBULINS [Concomitant]
     Indication: ANTISYNTHETASE SYNDROME
     Route: 042
  7. METHOTREXATE [Concomitant]
     Indication: ANTISYNTHETASE SYNDROME
  8. AZATHIOPRINE [Concomitant]
     Indication: ANTISYNTHETASE SYNDROME
  9. CHLORAMBUCIL [Concomitant]
     Indication: ANTISYNTHETASE SYNDROME

REACTIONS (2)
  - ANTISYNTHETASE SYNDROME [None]
  - RENAL FAILURE [None]
